FAERS Safety Report 5012741-6 (Version None)
Quarter: 2006Q2

REPORT INFORMATION
  Report Type: 
  Country: None (occurrence: None)
  Receive Date: 20060530
  Receipt Date: 20060517
  Transmission Date: 20061013
  Serious: Yes (Other)
  Sender: FDA-Public Use
  Company Number: US-KINGPHARMUSA00001-K200600659

PATIENT
  Age: 73 Year
  Sex: Male

DRUGS (8)
  1. SEPTRA [Suspect]
     Route: 048
  2. CRESTOR [Suspect]
     Dosage: 20 MG, QD
     Route: 048
  3. ASPIRIN [Concomitant]
  4. METFORMIN HYDROCHLORIDE [Concomitant]
  5. METOPROLOL TARTRATE [Concomitant]
  6. CLOPIDOGREL BISULFATE [Concomitant]
  7. GALANTAMINE HYDROBROMIDE [Concomitant]
  8. TRICHLORMETHIAZIDE [Concomitant]

REACTIONS (6)
  - BLOOD CREATINE PHOSPHOKINASE INCREASED [None]
  - DIFFICULTY IN WALKING [None]
  - MUSCULAR WEAKNESS [None]
  - NAUSEA [None]
  - RHABDOMYOLYSIS [None]
  - VOMITING [None]
